FAERS Safety Report 17502476 (Version 2)
Quarter: 2020Q2

REPORT INFORMATION
  Report Type: Spontaneous
  Country: US (occurrence: US)
  Receive Date: 20200305
  Receipt Date: 20200617
  Transmission Date: 20200713
  Serious: Yes (Hospitalization)
  Sender: FDA-Public Use
  Company Number: US-009507513-2003USA000611

PATIENT
  Age: 67 Year
  Sex: Male

DRUGS (3)
  1. KEYTRUDA [Suspect]
     Active Substance: PEMBROLIZUMAB
     Dosage: 200 MILLIGRAM, Q3W
     Route: 042
     Dates: start: 2019
  2. CARBOPLATIN. [Concomitant]
     Active Substance: CARBOPLATIN
     Dosage: AT AREA UNDER THE CURVE 5 EVERY 3 WEEKS
     Dates: start: 2019
  3. FLUOROURACIL. [Concomitant]
     Active Substance: FLUOROURACIL
     Dosage: 1,000 MG/M2 PER DAY FOR 4 DAYS ONCE EVERY 3 WEEKS
     Dates: start: 2019

REACTIONS (2)
  - Immune-mediated dermatitis [Recovered/Resolved]
  - Stomatitis [Recovered/Resolved]
